FAERS Safety Report 9325073 (Version 1)
Quarter: 2013Q2

REPORT INFORMATION
  Report Type: Spontaneous
  Country: CO (occurrence: CO)
  Receive Date: 20130603
  Receipt Date: 20130603
  Transmission Date: 20140414
  Serious: Yes (Death, Hospitalization)
  Sender: FDA-Public Use
  Company Number: CO-ASTRAZENECA-2013SE38095

PATIENT
  Age: 8 Month
  Sex: Female
  Weight: 7 kg

DRUGS (1)
  1. SYNAGIS [Suspect]
     Indication: HEART DISEASE CONGENITAL
     Route: 030
     Dates: start: 20120808, end: 20130227

REACTIONS (2)
  - Influenza [Fatal]
  - Nasal congestion [Fatal]
